FAERS Safety Report 5800253-9 (Version None)
Quarter: 2008Q3

REPORT INFORMATION
  Report Type: 
  Country: None (occurrence: None)
  Receive Date: 20080703
  Receipt Date: 20080623
  Transmission Date: 20090109
  Serious: Yes (Other)
  Sender: FDA-Public Use
  Company Number: PHHY2008KR11798

PATIENT
  Sex: Female

DRUGS (2)
  1. TEGRETOL [Suspect]
     Indication: HEADACHE
     Dosage: UNK, TID
     Route: 048
  2. TEGRETOL [Suspect]
     Dosage: UNK, BID

REACTIONS (4)
  - ASTHENIA [None]
  - CEREBROVASCULAR ACCIDENT [None]
  - NAUSEA [None]
  - SOMNOLENCE [None]
